FAERS Safety Report 5383497-2 (Version None)
Quarter: 2007Q3

REPORT INFORMATION
  Report Type: 
  Country: None (occurrence: None)
  Receive Date: 20070706
  Receipt Date: 20070627
  Transmission Date: 20080115
  Serious: Yes (Death)
  Sender: FDA-Public Use
  Company Number: 2007AL002595

PATIENT
  Age: 43 Year
  Sex: Male

DRUGS (2)
  1. SERTRALINE HYDROCHLORIDE [Suspect]
     Dosage: 50 MG; QD; PO
     Route: 048
     Dates: start: 20060701
  2. CLOZAPINE [Concomitant]

REACTIONS (1)
  - ANTIPSYCHOTIC DRUG LEVEL INCREASED [None]
